FAERS Safety Report 25580457 (Version 1)
Quarter: 2025Q3

REPORT INFORMATION
  Report Type: Spontaneous
  Country: US (occurrence: US)
  Receive Date: 20250718
  Receipt Date: 20250718
  Transmission Date: 20251020
  Serious: No
  Sender: NOVO NORDISK
  Company Number: US-NOVOPROD-1403608

PATIENT
  Sex: Male

DRUGS (2)
  1. WEGOVY [Interacting]
     Active Substance: SEMAGLUTIDE
     Indication: Weight control
  2. INSULIN NOS [Interacting]
     Active Substance: INSULIN NOS
     Indication: Product used for unknown indication

REACTIONS (1)
  - Blood glucose decreased [Unknown]

NARRATIVE: CASE EVENT DATE: 20250201
